FAERS Safety Report 6560412-7 (Version None)
Quarter: 2010Q1

REPORT INFORMATION
  Report Type: 
  Country: None (occurrence: None)
  Receive Date: 20100129
  Receipt Date: 20090922
  Transmission Date: 20100710
  Serious: No
  Sender: FDA-Public Use
  Company Number: US-ABBOTT-09P-163-0599108-00

PATIENT
  Sex: Female

DRUGS (4)
  1. HUMIRA [Suspect]
     Indication: PSORIASIS
     Route: 058
     Dates: start: 20090201, end: 20090921
  2. MOTRIN [Concomitant]
     Indication: DRUG USE FOR UNKNOWN INDICATION
  3. TRI-SPRINTEC [Concomitant]
     Indication: DRUG USE FOR UNKNOWN INDICATION
  4. CITALOPRAM [Concomitant]
     Indication: DRUG USE FOR UNKNOWN INDICATION

REACTIONS (1)
  - RASH ERYTHEMATOUS [None]
